FAERS Safety Report 13012342 (Version 7)
Quarter: 2018Q4

REPORT INFORMATION
  Report Type: Spontaneous
  Country: US (occurrence: US)
  Receive Date: 20161209
  Receipt Date: 20181218
  Transmission Date: 20190204
  Serious: No
  Sender: FDA-Public Use
  Company Number: US-PFIZER INC-2016570113

PATIENT
  Age: 52 Year
  Sex: Male

DRUGS (8)
  1. LYRICA [Suspect]
     Active Substance: PREGABALIN
     Dosage: 200 MG, 3X/DAY
     Route: 048
  2. TRADJENTA [Concomitant]
     Active Substance: LINAGLIPTIN
     Indication: DIABETES MELLITUS
     Dosage: 5 MG, 1X/DAY
     Route: 048
     Dates: start: 201606
  3. LYRICA [Suspect]
     Active Substance: PREGABALIN
     Dosage: 400 MG, 2X/DAY
     Route: 048
  4. METFORMIN [Concomitant]
     Active Substance: METFORMIN HYDROCHLORIDE
     Indication: DIABETES MELLITUS
     Dosage: 1000 MG, 2X/DAY
     Route: 048
  5. LYRICA [Suspect]
     Active Substance: PREGABALIN
     Indication: DIABETIC NEUROPATHY
     Dosage: UNK
     Dates: end: 20161129
  6. LYRICA [Suspect]
     Active Substance: PREGABALIN
     Indication: TYPE 2 DIABETES MELLITUS
     Dosage: 200 MG, 3X/DAY
     Route: 048
     Dates: start: 20161204
  7. GLIPIZIDE. [Concomitant]
     Active Substance: GLIPIZIDE
     Indication: DIABETES MELLITUS
     Dosage: 5 MG, 1X/DAY
     Route: 048
  8. LYRICA [Suspect]
     Active Substance: PREGABALIN
     Dosage: 600 MG, DAILY
     Route: 048

REACTIONS (7)
  - Overdose [Unknown]
  - Headache [Recovered/Resolved]
  - Vomiting [Unknown]
  - Drug ineffective [Unknown]
  - Tremor [Recovered/Resolved]
  - Diarrhoea [Recovered/Resolved]
  - Withdrawal syndrome [Unknown]

NARRATIVE: CASE EVENT DATE: 201612
